FAERS Safety Report 4883141-4 (Version None)
Quarter: 2006Q1

REPORT INFORMATION
  Report Type: 
  Country: None (occurrence: None)
  Receive Date: 20060117
  Receipt Date: 20060117
  Transmission Date: 20060701
  Serious: Yes (Hospitalization)
  Sender: FDA-Public Use
  Company Number: None

PATIENT
  Sex: Female
  Weight: 73.2 kg

DRUGS (2)
  1. WARFARIN [Suspect]
     Indication: HEART VALVE REPLACEMENT
     Dosage: 2MG   QDAY  PO
     Route: 048
  2. NAPROXEN [Suspect]
     Indication: PAIN
     Dosage: PRN  PO
     Route: 048

REACTIONS (1)
  - HAEMORRHAGE [None]
